FAERS Safety Report 8265479-6 (Version None)
Quarter: 2012Q2

REPORT INFORMATION
  Report Type: 
  Country: None (occurrence: None)
  Receive Date: 20120406
  Receipt Date: 20120403
  Transmission Date: 20120825
  Serious: Yes (Life-Threatening)
  Sender: FDA-Public Use
  Company Number: GB-PFIZER INC-2012055232

PATIENT
  Age: 52 Year
  Sex: Male
  Weight: 79 kg

DRUGS (1)
  1. VARENICLINE TARTRATE [Suspect]
     Indication: SMOKING CESSATION THERAPY
     Dosage: 1 MG, 2X/DAY
     Route: 048
     Dates: start: 20110712, end: 20111002

REACTIONS (6)
  - DEPRESSED MOOD [None]
  - SENSITIVITY OF TEETH [None]
  - AGEUSIA [None]
  - AGITATION [None]
  - SLEEP DISORDER [None]
  - SUICIDAL IDEATION [None]
